FAERS Safety Report 17163211 (Version 1)
Quarter: 2019Q4

REPORT INFORMATION
  Report Type: Spontaneous
  Country: SE (occurrence: SE)
  Receive Date: 20191217
  Receipt Date: 20191217
  Transmission Date: 20200122
  Serious: Yes (Hospitalization)
  Sender: FDA-Public Use
  Company Number: SE-TEVA-2019-SE-1152666

PATIENT
  Age: 12 Year
  Sex: Female

DRUGS (5)
  1. ALVEDON [Suspect]
     Active Substance: ACETAMINOPHEN
     Route: 048
     Dates: start: 20190730, end: 20190730
  2. FLUOXETINE [Suspect]
     Active Substance: FLUOXETINE HYDROCHLORIDE
     Route: 048
     Dates: start: 20190730, end: 20190730
  3. LERGIGAN (PROMETHAZINE HYDROCHLORIDE) [Suspect]
     Active Substance: PROMETHAZINE HYDROCHLORIDE
     Route: 048
     Dates: start: 20190730, end: 20190730
  4. THERALEN [Suspect]
     Active Substance: TRIMEPRAZINE
     Route: 048
     Dates: start: 20190730, end: 20190730
  5. ATARAX [Suspect]
     Active Substance: HYDROXYZINE HYDROCHLORIDE
     Route: 048
     Dates: start: 20190730, end: 20190730

REACTIONS (4)
  - Intentional overdose [Unknown]
  - Lethargy [Unknown]
  - Intentional self-injury [Unknown]
  - Fatigue [Unknown]

NARRATIVE: CASE EVENT DATE: 20190730
